FAERS Safety Report 8381138-3 (Version None)
Quarter: 2012Q2

REPORT INFORMATION
  Report Type: 
  Country: None (occurrence: None)
  Receive Date: 20120522
  Receipt Date: 20120511
  Transmission Date: 20120825
  Serious: Yes (Other)
  Sender: FDA-Public Use
  Company Number: NSR_00552_2012

PATIENT
  Age: 78 Year
  Sex: Male

DRUGS (3)
  1. BACLOFEN [Suspect]
     Indication: PAIN
     Dosage: SEE IMAGE
  2. BACLOFEN [Suspect]
     Indication: PAIN IN EXTREMITY
     Dosage: SEE IMAGE
  3. BACLOFEN [Suspect]
     Indication: MUSCLE SPASTICITY
     Dosage: SEE IMAGE

REACTIONS (3)
  - PARADOXICAL DRUG REACTION [None]
  - CONDITION AGGRAVATED [None]
  - DYSKINESIA [None]
